FAERS Safety Report 13642550 (Version 1)
Quarter: 2017Q2

REPORT INFORMATION
  Report Type: Spontaneous
  Country: FR (occurrence: FR)
  Receive Date: 20170612
  Receipt Date: 20170612
  Transmission Date: 20170830
  Serious: Yes (Hospitalization, Other)
  Sender: FDA-Public Use
  Company Number: FR-BRISTOL-MYERS SQUIBB COMPANY-BMS-2017-047788

PATIENT
  Sex: Male

DRUGS (1)
  1. COUMADINE [Suspect]
     Active Substance: WARFARIN SODIUM
     Indication: ATRIAL FIBRILLATION
     Dosage: 2 MG, BID
     Route: 048
     Dates: end: 20170222

REACTIONS (6)
  - Intestinal polyp [Unknown]
  - Anaemia [Recovering/Resolving]
  - Haemorrhoidal haemorrhage [Unknown]
  - Rectal haemorrhage [Recovering/Resolving]
  - Packed red blood cell transfusion [Unknown]
  - Colon adenoma [Unknown]
